FAERS Safety Report 21624770 (Version 3)
Quarter: 2023Q1

REPORT INFORMATION
  Report Type: Report from Study
  Country: US (occurrence: US)
  Receive Date: 20221122
  Receipt Date: 20230323
  Transmission Date: 20230417
  Serious: No
  Sender: FDA-Public Use
  Company Number: US-ABBVIE-22K-163-4474592-00

PATIENT
  Age: 57 Year
  Sex: Male
  Weight: 88 kg

DRUGS (2)
  1. IBRUTINIB [Suspect]
     Active Substance: IBRUTINIB
     Indication: Chronic lymphocytic leukaemia
     Route: 048
     Dates: start: 20220603
  2. IBRUTINIB [Suspect]
     Active Substance: IBRUTINIB
     Indication: Chronic lymphocytic leukaemia
     Route: 048
     Dates: start: 20220610

REACTIONS (11)
  - Neutrophil count decreased [Recovered/Resolved]
  - Eye infection [Recovered/Resolved]
  - Arthralgia [Unknown]
  - Haemorrhage [Unknown]
  - White blood cell count abnormal [Unknown]
  - Paranasal sinus haemorrhage [Unknown]
  - Rhinitis [Unknown]
  - Vitamin D decreased [Recovered/Resolved]
  - Sinusitis [Recovered/Resolved]
  - Sinusitis [Recovered/Resolved]
  - Lymphocyte count decreased [Unknown]

NARRATIVE: CASE EVENT DATE: 20220801
